FAERS Safety Report 9501094 (Version 1)
Quarter: 2013Q1

REPORT INFORMATION
  Report Type: Spontaneous
  Country: US (occurrence: None)
  Receive Date: 20130107
  Receipt Date: 20130107
  Transmission Date: 20140127
  Serious: No
  Sender: FDA-Public Use
  Company Number: PHEH2012US018088

PATIENT
  Sex: Male

DRUGS (2)
  1. GILENYA (FTY)CAPSULE,0.5MG [Suspect]
     Indication: MULTIPLE SCLEROSIS
     Route: 048
     Dates: start: 20120720
  2. FAMPRIDINE [Suspect]

REACTIONS (2)
  - Nausea [None]
  - Visual acuity reduced [None]
